FAERS Safety Report 17428491 (Version 2)
Quarter: 2020Q1

REPORT INFORMATION
  Report Type: Spontaneous
  Country: FR (occurrence: FR)
  Receive Date: 20200217
  Receipt Date: 20200319
  Transmission Date: 20200409
  Serious: Yes (Hospitalization)
  Sender: FDA-Public Use
  Company Number: FR-ALLERGAN-2007306US

PATIENT
  Sex: Male

DRUGS (1)
  1. XYDALBA [Suspect]
     Active Substance: DALBAVANCIN HYDROCHLORIDE
     Indication: DEVICE RELATED INFECTION
     Route: 042
     Dates: start: 20200118, end: 20200118

REACTIONS (2)
  - Pruritus [Recovered/Resolved]
  - Prurigo [Recovered/Resolved]

NARRATIVE: CASE EVENT DATE: 20200118
